FAERS Safety Report 7556651-9 (Version None)
Quarter: 2011Q2

REPORT INFORMATION
  Report Type: 
  Country: None (occurrence: None)
  Receive Date: 20110620
  Receipt Date: 20110610
  Transmission Date: 20111010
  Serious: Yes (Hospitalization)
  Sender: FDA-Public Use
  Company Number: US-PERRIGO-11US004840

PATIENT
  Age: 50 Year
  Sex: Male

DRUGS (2)
  1. NITETIME FREE CHRY 6HR LIQ 041 [Suspect]
     Indication: INSOMNIA
  2. NITETIME FREE CHRY 6HR LIQ 041 [Suspect]
     Indication: NASOPHARYNGITIS
     Dosage: UNK
     Route: 048
     Dates: start: 20110527, end: 20110527

REACTIONS (5)
  - PYREXIA [None]
  - DYSPNOEA [None]
  - DEHYDRATION [None]
  - PNEUMONIA [None]
  - VOMITING [None]
